FAERS Safety Report 22058761 (Version 1)
Quarter: 2023Q1

REPORT INFORMATION
  Report Type: Spontaneous
  Country: US (occurrence: US)
  Receive Date: 20230303
  Receipt Date: 20230303
  Transmission Date: 20230417
  Serious: No
  Sender: FDA-Public Use
  Company Number: US-LEO Pharma-349572

PATIENT
  Sex: Female

DRUGS (5)
  1. TACROLIMUS [Suspect]
     Active Substance: TACROLIMUS
     Indication: Eczema
     Dosage: USING THIS PRODUCT ON HER LEGS, ARMS AND TORSO
     Route: 003
     Dates: start: 2018
  2. TACROLIMUS [Suspect]
     Active Substance: TACROLIMUS
     Indication: Eczema
     Dosage: USING THIS PRODUCT ON HER LEGS, ARMS AND TORSO
     Route: 003
     Dates: start: 2018
  3. TACROLIMUS [Suspect]
     Active Substance: TACROLIMUS
     Indication: Eczema
     Dosage: USING THIS PRODUCT ON HER LEGS, ARMS AND TORSO
     Route: 003
  4. TACROLIMUS [Suspect]
     Active Substance: TACROLIMUS
     Indication: Eczema
     Dosage: USING THIS PRODUCT ON HER LEGS, ARMS AND TORSO
     Route: 003
  5. TRIAMCINOLONE [Concomitant]
     Active Substance: TRIAMCINOLONE
     Indication: Eczema
     Route: 003
     Dates: start: 2018

REACTIONS (8)
  - Product packaging confusion [Recovered/Resolved]
  - Product administered at inappropriate site [Unknown]
  - Intentional dose omission [Not Recovered/Not Resolved]
  - Skin wrinkling [Unknown]
  - Expired product administered [Not Recovered/Not Resolved]
  - Pruritus [Unknown]
  - Intentional product use issue [Recovered/Resolved]
  - Skin burning sensation [Unknown]
